FAERS Safety Report 16978450 (Version 1)
Quarter: 2019Q4

REPORT INFORMATION
  Report Type: Spontaneous
  Country: GB (occurrence: FR)
  Receive Date: 20191031
  Receipt Date: 20191031
  Transmission Date: 20200122
  Serious: Yes (Hospitalization)
  Sender: FDA-Public Use
  Company Number: FR-BAYER-2019-191540

PATIENT
  Age: 40 Year
  Sex: Female

DRUGS (2)
  1. ESTROGEN NOS;PROGESTERONE [Suspect]
     Active Substance: ESTROGENS\PROGESTERONE
     Indication: CONTRACEPTION
     Dosage: 1 DF, QD
     Route: 048
  2. MIRENA [Suspect]
     Active Substance: LEVONORGESTREL
     Indication: INTRAUTERINE CONTRACEPTION
     Dosage: 20 MCG/24HR, CONT
     Route: 015

REACTIONS (1)
  - Meningioma [Recovered/Resolved with Sequelae]

NARRATIVE: CASE EVENT DATE: 201705
